FAERS Safety Report 9382377 (Version 1)
Quarter: 2013Q3

REPORT INFORMATION
  Report Type: Report from Study
  Country: BR (occurrence: BR)
  Receive Date: 20130703
  Receipt Date: 20130703
  Transmission Date: 20140515
  Serious: Yes (Hospitalization, Other)
  Sender: FDA-Public Use
  Company Number: PHHY2013BR069688

PATIENT
  Sex: Female

DRUGS (7)
  1. SANDOSTATIN LAR [Suspect]
     Indication: ACROMEGALY
     Dosage: 10 MG, A WEEK
     Route: 030
  2. SANDOSTATIN LAR [Suspect]
     Dosage: 30 MG, EVERY 28 DAYS
     Route: 030
  3. SANDOSTATIN LAR [Suspect]
     Dosage: 20 MG, EVERY 56 DAYS
     Route: 030
  4. METFORMIN [Concomitant]
     Indication: DIABETES MELLITUS
     Dosage: 2 DF, A DAY
     Route: 048
     Dates: start: 1996
  5. ENALAPRIL [Concomitant]
     Indication: BLOOD PRESSURE INCREASED
     Dosage: 2 DF, A DAY
     Route: 048
  6. PURAN T4 [Concomitant]
     Indication: HYPOTHYROIDISM
     Dosage: 1 DF, IN THE MORNING
     Route: 048
  7. SIMVASTATIN [Concomitant]
     Dosage: 1 DF, A DAY
     Route: 048

REACTIONS (4)
  - Syncope [Recovered/Resolved]
  - Abdominal pain [Recovered/Resolved]
  - Cholelithiasis [Recovered/Resolved]
  - Benign neoplasm of cervix uteri [Recovering/Resolving]
